FAERS Safety Report 12694194 (Version 1)
Quarter: 2016Q3

REPORT INFORMATION
  Report Type: Report from Study
  Country: US (occurrence: US)
  Receive Date: 20160829
  Receipt Date: 20160829
  Transmission Date: 20161109
  Serious: Yes (Hospitalization, Other)
  Sender: FDA-Public Use
  Company Number: PHEH2016US021037

PATIENT
  Sex: Female

DRUGS (1)
  1. COSENTYX [Suspect]
     Active Substance: SECUKINUMAB
     Indication: PSORIASIS
     Dosage: 150 MG, QW
     Route: 058

REACTIONS (5)
  - Diabetes mellitus [Not Recovered/Not Resolved]
  - Fall [Unknown]
  - Incorrect dose administered [Unknown]
  - Foot fracture [Unknown]
  - Loss of consciousness [Unknown]
